FAERS Safety Report 7870084-7 (Version None)
Quarter: 2011Q4

REPORT INFORMATION
  Report Type: 
  Country: None (occurrence: None)
  Receive Date: 20111028
  Receipt Date: 20110113
  Transmission Date: 20120403
  Serious: Yes (Other)
  Sender: FDA-Public Use
  Company Number: US-AMGEN-USASP2010009705

PATIENT
  Age: 58 Year
  Sex: Female

DRUGS (5)
  1. ENBREL [Suspect]
     Dosage: 25 MG, QWK
     Route: 058
     Dates: start: 20050101, end: 20091130
  2. METHOTREXATE [Concomitant]
     Dosage: UNK
     Dates: start: 20050101
  3. PLAQUENIL [Concomitant]
     Dosage: UNK
     Dates: start: 20050101
  4. SULFASALAZINE [Concomitant]
     Dosage: UNK
     Dates: start: 20050101
  5. ENBREL [Suspect]
     Indication: RHEUMATOID ARTHRITIS
     Dates: start: 20041201, end: 20100901

REACTIONS (1)
  - BASAL CELL CARCINOMA [None]
